FAERS Safety Report 14695379 (Version 2)
Quarter: 2020Q1

REPORT INFORMATION
  Report Type: Spontaneous
  Country: US (occurrence: US)
  Receive Date: 20180329
  Receipt Date: 20200213
  Transmission Date: 20200409
  Serious: Yes (Hospitalization)
  Sender: FDA-Public Use
  Company Number: US-ACTELION-A-NJ2018-169536

PATIENT
  Sex: Female

DRUGS (10)
  1. OPSUMIT [Suspect]
     Active Substance: MACITENTAN
     Indication: PULMONARY ARTERIAL HYPERTENSION
     Dosage: 10 MG, QD
     Route: 048
     Dates: start: 20181204
  2. LETROZOLE. [Concomitant]
     Active Substance: LETROZOLE
  3. OMEPRAZOLE. [Concomitant]
     Active Substance: OMEPRAZOLE
  4. ATORVASTATIN [Concomitant]
     Active Substance: ATORVASTATIN
  5. CALCIUM [Concomitant]
     Active Substance: CALCIUM
  6. BUMEX [Concomitant]
     Active Substance: BUMETANIDE
  7. RANITIDINE. [Concomitant]
     Active Substance: RANITIDINE
  8. POTASSIUM [Concomitant]
     Active Substance: POTASSIUM
  9. MULTI VITAMIN [Concomitant]
     Active Substance: VITAMINS
  10. DILTIAZEM. [Concomitant]
     Active Substance: DILTIAZEM

REACTIONS (2)
  - Rehabilitation therapy [Unknown]
  - Heart rate increased [Unknown]
